FAERS Safety Report 9643861 (Version 1)
Quarter: 2013Q4

REPORT INFORMATION
  Report Type: Spontaneous
  Country: US (occurrence: US)
  Receive Date: 20131024
  Receipt Date: 20131024
  Transmission Date: 20140711
  Serious: No
  Sender: FDA-Public Use
  Company Number: US-ASTRAZENECA-2013SE75992

PATIENT
  Age: 58 Year
  Sex: Male
  Weight: 85.3 kg

DRUGS (9)
  1. LISINOPRIL [Suspect]
     Indication: HYPERTENSION
     Route: 048
  2. TOPROL XL [Suspect]
     Indication: HYPERTENSION
     Route: 048
  3. CRESTOR [Suspect]
     Indication: BLOOD CHOLESTEROL
     Route: 048
     Dates: start: 2012, end: 2012
  4. CRESTOR [Suspect]
     Indication: THERAPY CHANGE
     Route: 048
     Dates: start: 2012, end: 2012
  5. CRESTOR [Suspect]
     Indication: BLOOD CHOLESTEROL
     Route: 048
     Dates: start: 2013
  6. CRESTOR [Suspect]
     Indication: THERAPY CHANGE
     Route: 048
     Dates: start: 2013
  7. ASPIRIN [Concomitant]
     Indication: CORONARY ARTERY DISEASE
  8. SIMVASTATIN [Concomitant]
  9. CHOLESTEROL LOWERING MEDICATION [Concomitant]

REACTIONS (5)
  - Drug ineffective [Unknown]
  - Blood cholesterol increased [Recovered/Resolved]
  - Hypertension [Unknown]
  - Blood glucose increased [Unknown]
  - Drug effect increased [Recovered/Resolved]
